FAERS Safety Report 8280225-8 (Version None)
Quarter: 2012Q2

REPORT INFORMATION
  Report Type: 
  Country: None (occurrence: None)
  Receive Date: 20120412
  Receipt Date: 20111006
  Transmission Date: 20120825
  Serious: Yes (Hospitalization, Other)
  Sender: FDA-Public Use
  Company Number: US-ASTRAZENECA-2011SE59945

PATIENT

DRUGS (1)
  1. NEXIUM [Suspect]
     Route: 048
     Dates: start: 20110101

REACTIONS (2)
  - DRUG DOSE OMISSION [None]
  - PANCREATITIS [None]
